FAERS Safety Report 4640583-X (Version None)
Quarter: 2005Q2

REPORT INFORMATION
  Report Type: 
  Country: None (occurrence: None)
  Receive Date: 20050321
  Receipt Date: 20040415
  Transmission Date: 20051028
  Serious: Yes (Other)
  Sender: FDA-Public Use
  Company Number: 2004-04-0802

PATIENT
  Age: 47 Year
  Sex: Female

DRUGS (9)
  1. PEG-INTRON [Suspect]
     Indication: HEPATITIS C
     Dosage: 80 MCG QWK SUBCUTANEOUS
     Route: 058
     Dates: start: 20021213, end: 20031101
  2. REBETOL [Suspect]
     Indication: HEPATITIS C
     Dosage: 800 MG QD ORAL
     Route: 048
     Dates: start: 20021213, end: 20031101
  3. OXYCONTIN [Concomitant]
  4. PREMARIN [Concomitant]
  5. PREVACID CAPSULES [Concomitant]
  6. REGLAN RAPIDLY-DISINTEGRATING TABLETS [Concomitant]
  7. SKELAXIN [Concomitant]
  8. VITAMIN E [Concomitant]
  9. WELLBUTRIN [Concomitant]

REACTIONS (3)
  - ANXIETY [None]
  - PANCREATITIS [None]
  - VISUAL DISTURBANCE [None]
